FAERS Safety Report 4668896-6 (Version None)
Quarter: 2005Q2

REPORT INFORMATION
  Report Type: 
  Country: None (occurrence: None)
  Receive Date: 20050523
  Receipt Date: 20041021
  Transmission Date: 20051028
  Serious: Yes (Other)
  Sender: FDA-Public Use
  Company Number: PHBS2004BR13974

PATIENT
  Age: 48 Year
  Sex: Female

DRUGS (5)
  1. DOCETAXEL [Concomitant]
     Dosage: 3 CYCLES
     Route: 065
     Dates: start: 20031101
  2. CISPLATIN [Concomitant]
     Dosage: 3 CYCLES
     Route: 065
     Dates: start: 20031101
  3. GEMCITABINE [Concomitant]
     Route: 065
     Dates: start: 20040201
  4. CARBOPLATIN [Concomitant]
     Route: 065
     Dates: start: 20031101
  5. ZOMETA [Suspect]
     Indication: LUNG ADENOCARCINOMA
     Dosage: 4 MG, QMO
     Route: 042
     Dates: start: 20031101

REACTIONS (7)
  - ANAEMIA [None]
  - ASEPTIC NECROSIS BONE [None]
  - BONE TRIMMING [None]
  - MUCOSAL INFLAMMATION [None]
  - PLASTIC SURGERY [None]
  - PROSTHESIS USER [None]
  - TOOTH EXTRACTION [None]
